FAERS Safety Report 9464838 (Version 1)
Quarter: 2013Q3

REPORT INFORMATION
  Report Type: Report from Study
  Country: BR (occurrence: BR)
  Receive Date: 20130819
  Receipt Date: 20130819
  Transmission Date: 20140515
  Serious: Yes (Other)
  Sender: FDA-Public Use
  Company Number: BR-ROCHE-1263778

PATIENT
  Sex: Male
  Weight: 75.3 kg

DRUGS (4)
  1. XOLAIR [Suspect]
     Indication: PRODUCT USED FOR UNKNOWN INDICATION
     Dosage: LAST DOSE ON 01/JUL2013
     Route: 065
     Dates: start: 20130701
  2. INFLUENZA VIRUS VACCINE [Suspect]
     Indication: PRODUCT USED FOR UNKNOWN INDICATION
     Route: 065
  3. ALENIA (BRAZIL) [Concomitant]
  4. FORASEQ (BRAZIL) [Concomitant]

REACTIONS (4)
  - Chronic obstructive pulmonary disease [Unknown]
  - Osteoporosis [Unknown]
  - Influenza [Unknown]
  - Back pain [Unknown]
